FAERS Safety Report 23351738 (Version 1)
Quarter: 2023Q4

REPORT INFORMATION
  Report Type: Spontaneous
  Country: JP (occurrence: JP)
  Receive Date: 20231229
  Receipt Date: 20231229
  Transmission Date: 20240109
  Serious: Yes (Other)
  Sender: FDA-Public Use
  Company Number: JP-UCBSA-2023061025

PATIENT
  Age: 8 Decade
  Sex: Female

DRUGS (1)
  1. CIMZIA [Suspect]
     Active Substance: CERTOLIZUMAB PEGOL
     Indication: Rheumatoid arthritis
     Dosage: UNK, EVERY 2 WEEKS
     Route: 058

REACTIONS (16)
  - Triple negative breast cancer [Unknown]
  - Spinal compression fracture [Unknown]
  - Immunodeficiency [Unknown]
  - Pain in extremity [Unknown]
  - Nausea [Unknown]
  - Physical deconditioning [Unknown]
  - Oral mucosal roughening [Unknown]
  - Tongue discolouration [Unknown]
  - Taste disorder [Unknown]
  - Constipation [Unknown]
  - Alopecia [Unknown]
  - Back pain [Unknown]
  - Osteoporosis [Unknown]
  - Renal function test abnormal [Unknown]
  - Insomnia [Unknown]
  - Gait disturbance [Unknown]

NARRATIVE: CASE EVENT DATE: 20230101
